FAERS Safety Report 10348676 (Version 1)
Quarter: 2014Q3

REPORT INFORMATION
  Report Type: Spontaneous
  Country: CA (occurrence: None)
  Receive Date: 20140725
  Receipt Date: 20140725
  Transmission Date: 20150326
  Serious: Yes (Other)
  Sender: FDA-Public Use
  Company Number: 2014CA00873

PATIENT

DRUGS (2)
  1. ALISKIREN (ALISKIREN) 150MG [Suspect]
     Active Substance: ALISKIREN
     Indication: HYPERTENSION
     Dosage: 150 MG DAILY DAYS 11 TO 21 (PLUS OR MINUS 2 DAYS)
  2. AMLODIPINE [Suspect]
     Active Substance: AMLODIPINE BESYLATE
     Indication: HYPERTENSION

REACTIONS (2)
  - Bronchitis [None]
  - Pneumonia [None]
